FAERS Safety Report 14336206 (Version 4)
Quarter: 2018Q2

REPORT INFORMATION
  Report Type: Spontaneous
  Country: BR (occurrence: BR)
  Receive Date: 20171229
  Receipt Date: 20180514
  Transmission Date: 20180711
  Serious: Yes (Disabling, Other)
  Sender: FDA-Public Use
  Company Number: BR-ABBVIE-17P-020-2206345-00

PATIENT
  Sex: Female
  Weight: 31 kg

DRUGS (15)
  1. PRIMIDONE. [Concomitant]
     Active Substance: PRIMIDONE
     Indication: SEIZURE
     Route: 048
  2. GARDENAL [Concomitant]
     Active Substance: PHENOBARBITAL
     Route: 048
  3. DOGMATIL [Concomitant]
     Active Substance: SULPIRIDE
     Indication: SEIZURE
     Route: 048
  4. DEPAKOTE [Suspect]
     Active Substance: DIVALPROEX SODIUM
     Route: 048
  5. RIVOTRIL [Concomitant]
     Active Substance: CLONAZEPAM
     Indication: EPILEPSY
     Dosage: 1 TABLET; AT NIGHT
     Route: 048
  6. DEPAKOTE [Suspect]
     Active Substance: DIVALPROEX SODIUM
     Route: 048
     Dates: start: 20180423
  7. DEPAKENE [Suspect]
     Active Substance: VALPROIC ACID
     Indication: SEIZURE
     Route: 048
  8. HIDANTAL [Concomitant]
     Active Substance: PHENYTOIN SODIUM
     Indication: SEIZURE
  9. DEPAKOTE [Suspect]
     Active Substance: DIVALPROEX SODIUM
     Indication: EPILEPSY
     Route: 048
     Dates: start: 2002
  10. DEPAKOTE [Suspect]
     Active Substance: DIVALPROEX SODIUM
     Route: 048
     Dates: start: 201802, end: 20180423
  11. NEULEPTIL [Concomitant]
     Active Substance: PERICIAZINE
     Indication: DISTURBANCE IN ATTENTION
     Dosage: 3 OR 4 DROPS
     Route: 048
  12. FRISIUM [Concomitant]
     Active Substance: CLOBAZAM
     Indication: EPILEPSY
     Route: 048
     Dates: start: 2005, end: 2017
  13. TRILEPTAL [Concomitant]
     Active Substance: OXCARBAZEPINE
     Indication: SEIZURE
  14. GARDENAL [Concomitant]
     Active Substance: PHENOBARBITAL
     Indication: EPILEPSY
     Route: 048
     Dates: start: 2005
  15. URBANIL [Concomitant]
     Active Substance: CLOBAZAM
     Indication: EPILEPSY
     Route: 048

REACTIONS (15)
  - Blood cholesterol increased [Not Recovered/Not Resolved]
  - Food refusal [Unknown]
  - Muscle spasms [Unknown]
  - Cognitive disorder [Not Recovered/Not Resolved]
  - Nervousness [Unknown]
  - Cough [Unknown]
  - Hypothyroidism [Unknown]
  - Speech disorder developmental [Not Recovered/Not Resolved]
  - Off label use [Unknown]
  - Secretion discharge [Unknown]
  - Partial seizures [Unknown]
  - Product use issue [Unknown]
  - Malaise [Unknown]
  - Gingival swelling [Unknown]
  - Nausea [Unknown]
